FAERS Safety Report 6473208-1 (Version None)
Quarter: 2009Q4

REPORT INFORMATION
  Report Type: 
  Country: None (occurrence: None)
  Receive Date: 20091204
  Receipt Date: 20080624
  Transmission Date: 20100525
  Serious: Yes (Hospitalization)
  Sender: FDA-Public Use
  Company Number: US-ELI_LILLY_AND_COMPANY-US200805005397

PATIENT
  Sex: Female
  Weight: 89.342 kg

DRUGS (8)
  1. ZYPREXA [Suspect]
     Indication: SCHIZOAFFECTIVE DISORDER
     Dosage: 2.5 MG, EACH EVENING
     Route: 048
     Dates: start: 20040101
  2. ZYPREXA [Suspect]
     Dosage: 7.5 MG, EACH MORNING
     Route: 048
  3. DEPAKOTE [Concomitant]
  4. TYLENOL                                 /SCH/ [Concomitant]
  5. CALCIUM [Concomitant]
  6. LAXATIVES [Concomitant]
  7. ANTIHYPERTENSIVES [Concomitant]
  8. ATROVENT [Concomitant]

REACTIONS (4)
  - ABNORMAL BEHAVIOUR [None]
  - CHOLECYSTITIS [None]
  - CHRONIC OBSTRUCTIVE PULMONARY DISEASE [None]
  - REFUSAL OF TREATMENT BY PATIENT [None]
